FAERS Safety Report 24667778 (Version 1)
Quarter: 2024Q4

REPORT INFORMATION
  Report Type: Report from Study
  Country: US (occurrence: US)
  Receive Date: 20241127
  Receipt Date: 20241127
  Transmission Date: 20250114
  Serious: Yes (Death)
  Sender: ABBVIE
  Company Number: US-ABBVIE-6022080

PATIENT
  Sex: Male

DRUGS (1)
  1. VENCLEXTA [Suspect]
     Active Substance: VENETOCLAX
     Indication: Myelodysplastic syndrome with excess blasts
     Dosage: FORM STRENGTH 100 MG, TAKE 1 TABLET BY MOUTH DAILY FOR 14 DAYS FOLLOWED BY 14 DAYS OFF.
     Route: 048

REACTIONS (1)
  - Death [Fatal]
